FAERS Safety Report 9650716 (Version 2)
Quarter: 2014Q2

REPORT INFORMATION
  Report Type: Spontaneous
  Country: AT (occurrence: AT)
  Receive Date: 20131029
  Receipt Date: 20140506
  Transmission Date: 20141212
  Serious: Yes (Hospitalization, Other)
  Sender: FDA-Public Use
  Company Number: AT-BRISTOL-MYERS SQUIBB COMPANY-19610351

PATIENT
  Age: 25 Year
  Sex: Male
  Weight: 93 kg

DRUGS (5)
  1. ABILIFY TABS [Suspect]
     Dosage: 15MG:29JUN13,2JUL13?20MG:1JUL13
     Route: 048
     Dates: start: 201304
  2. CYMBALTA [Interacting]
     Dosage: TABS?150MG:14JUN13?120MG:1JUL13?60MG:12JUL13
     Route: 048
     Dates: start: 201303, end: 20130712
  3. XANOR [Suspect]
     Dosage: TABS?2.5MG:22JUN13,29JUN13?3MG:24JUN13?0.5MG:4JUL13
     Route: 048
     Dates: start: 20130621, end: 20130704
  4. ZYPREXA [Suspect]
     Dosage: TABS?10MG:20JUN13?5MG:24JUN13-25JUN13
     Route: 048
     Dates: start: 201303
  5. TEMESTA [Concomitant]
     Dosage: TABS
     Route: 048
     Dates: start: 20130705

REACTIONS (2)
  - Urinary retention [Recovered/Resolved]
  - Drug interaction [Unknown]
